FAERS Safety Report 10482655 (Version 1)
Quarter: 2014Q3

REPORT INFORMATION
  Report Type: Spontaneous
  Country: CA (occurrence: CA)
  Receive Date: 20140929
  Receipt Date: 20140929
  Transmission Date: 20150326
  Serious: Yes (Death, Other)
  Sender: FDA-Public Use
  Company Number: CA-PFIZER INC-2014267979

PATIENT
  Age: 53 Year
  Sex: Male

DRUGS (8)
  1. SALICYLIC ACID [Suspect]
     Active Substance: SALICYLIC ACID
     Route: 065
  2. CODEINE [Suspect]
     Active Substance: CODEINE
     Route: 065
  3. DIPHENHYDRAMINE [Suspect]
     Active Substance: DIPHENHYDRAMINE
     Route: 065
  4. MORPHINE SULFATE. [Suspect]
     Active Substance: MORPHINE SULFATE
     Route: 065
  5. ACETAMINOPHEN. [Suspect]
     Active Substance: ACETAMINOPHEN
     Route: 065
  6. ADVIL [Suspect]
     Active Substance: IBUPROFEN
     Route: 065
  7. CAFFEINE. [Suspect]
     Active Substance: CAFFEINE
     Route: 065
  8. FIORINAL [Suspect]
     Active Substance: ASPIRIN\BUTALBITAL\CAFFEINE
     Route: 065

REACTIONS (4)
  - Pulmonary congestion [Fatal]
  - Cardio-respiratory arrest [Fatal]
  - Coronary artery stenosis [Fatal]
  - Toxicity to various agents [Fatal]
